FAERS Safety Report 11788145 (Version 2)
Quarter: 2017Q1

REPORT INFORMATION
  Report Type: Spontaneous
  Country: CN (occurrence: CN)
  Receive Date: 20151201
  Receipt Date: 20170130
  Transmission Date: 20170428
  Serious: Yes (Death, Other)
  Sender: FDA-Public Use
  Company Number: CN-SUN PHARMACEUTICAL INDUSTRIES LTD-2015R1-106820

PATIENT
  Age: 36 Year
  Sex: Male

DRUGS (3)
  1. TEMOZOLOMIDE. [Suspect]
     Active Substance: TEMOZOLOMIDE
     Indication: GLIOBLASTOMA MULTIFORME
     Dosage: 75 MG/M2, DAILY
     Route: 065
  2. CISPLATIN. [Suspect]
     Active Substance: CISPLATIN
     Indication: GLIOBLASTOMA MULTIFORME
     Dosage: 5 CYCLES OF (30 MG/M^2 FOR CONTINUOUS 3 DAYS TO A TOTAL OF 100 MG DURING EACH 28-DAY CYCLE)
     Route: 065
  3. TEMOZOLOMIDE. [Suspect]
     Active Substance: TEMOZOLOMIDE
     Dosage: 3 CYCLES OF (150-200 MG/M2/DAILY FOR 5 DAYS DURING EACH 28-DAY CYCLE)
     Route: 065

REACTIONS (1)
  - Metastatic neoplasm [Fatal]
